FAERS Safety Report 8876003 (Version 2)
Quarter: 2012Q4

REPORT INFORMATION
  Report Type: 
  Country: JP (occurrence: JP)
  Receive Date: 20121023
  Receipt Date: 20121101
  Transmission Date: 20130627
  Serious: Yes (Other)
  Sender: FDA-Public Use
  Company Number: JP-PFIZER INC-2012264193

PATIENT
  Age: 80 Year
  Sex: Female

DRUGS (3)
  1. LYRICA [Suspect]
     Dosage: 150 mg, 1x/day
     Route: 048
     Dates: start: 201201, end: 2012
  2. VOLTAREN [Concomitant]
  3. ASPIRIN ^BAYER^ [Concomitant]

REACTIONS (2)
  - Gastric ulcer [Unknown]
  - Anaemia [Unknown]
